FAERS Safety Report 6047240-6 (Version None)
Quarter: 2009Q1

REPORT INFORMATION
  Report Type: 
  Country: None (occurrence: None)
  Receive Date: 20090121
  Receipt Date: 20080923
  Transmission Date: 20090719
  Serious: No
  Sender: FDA-Public Use
  Company Number: A-US2008-19400

PATIENT
  Age: 63 Year
  Sex: Female

DRUGS (3)
  1. TRACLEER [Suspect]
     Indication: PULMONARY EMBOLISM
     Dosage: 125 MG, BID, ORAL : 62.5 MG, BID, ORAL
     Route: 048
     Dates: start: 20071201, end: 20080121
  2. TRACLEER [Suspect]
     Indication: PULMONARY EMBOLISM
     Dosage: 125 MG, BID, ORAL : 62.5 MG, BID, ORAL
     Route: 048
     Dates: start: 20080122
  3. SILDENAFIL CITRATE [Concomitant]

REACTIONS (3)
  - CONSTIPATION [None]
  - OEDEMA PERIPHERAL [None]
  - RED BLOOD CELL COUNT DECREASED [None]
